FAERS Safety Report 22106454 (Version 2)
Quarter: 2025Q2

REPORT INFORMATION
  Report Type: Spontaneous
  Country: US (occurrence: US)
  Receive Date: 20230317
  Receipt Date: 20250422
  Transmission Date: 20250717
  Serious: No
  Sender: SANOFI AVENTIS
  Company Number: US-SA-SAC20230310000058

PATIENT
  Age: 9 Year
  Sex: Male
  Weight: 40.91 kg

DRUGS (1)
  1. ALDURAZYME [Suspect]
     Active Substance: LARONIDASE
     Indication: Mucopolysaccharidosis I
     Dosage: 23.2 MG, QW
     Route: 042
     Dates: start: 201812

REACTIONS (2)
  - Weight increased [Unknown]
  - Pyrexia [Unknown]
